FAERS Safety Report 25092516 (Version 1)
Quarter: 2025Q1

REPORT INFORMATION
  Report Type: Spontaneous
  Country: CN (occurrence: CN)
  Receive Date: 20250319
  Receipt Date: 20250319
  Transmission Date: 20250408
  Serious: Yes (Hospitalization, Other)
  Sender: SANDOZ
  Company Number: CN-002147023-NVSC2025CN043357

PATIENT
  Age: 40 Year
  Sex: Male
  Weight: 57.5 kg

DRUGS (2)
  1. TOBRADEX [Suspect]
     Active Substance: DEXAMETHASONE\TOBRAMYCIN
     Indication: Inflammation
     Dosage: 0.2 G, QD
     Route: 047
     Dates: start: 20250216, end: 20250307
  2. TOBRADEX [Suspect]
     Active Substance: DEXAMETHASONE\TOBRAMYCIN
     Indication: Inflammation
     Dosage: 1 DROP, QID
     Route: 047
     Dates: start: 20250216, end: 20250307

REACTIONS (5)
  - Intraocular pressure increased [Recovered/Resolved]
  - Iris adhesions [Unknown]
  - Angle closure glaucoma [Unknown]
  - Inflammation [Unknown]
  - Narrow anterior chamber angle [Unknown]

NARRATIVE: CASE EVENT DATE: 20250226
